APPROVED DRUG PRODUCT: TRISENOX
Active Ingredient: ARSENIC TRIOXIDE
Strength: 2MG/ML
Dosage Form/Route: INJECTABLE;INJECTION
Application: N021248 | Product #002 | TE Code: AP
Applicant: CEPHALON INC
Approved: Oct 13, 2017 | RLD: Yes | RS: Yes | Type: RX